FAERS Safety Report 16677015 (Version 1)
Quarter: 2019Q3

REPORT INFORMATION
  Report Type: Spontaneous
  Country: US (occurrence: US)
  Receive Date: 20190807
  Receipt Date: 20190807
  Transmission Date: 20191004
  Serious: No
  Sender: FDA-Public Use
  Company Number: US-CURIUM PHARMACEUTICALS-200900483

PATIENT
  Age: 68 Year
  Sex: Female

DRUGS (2)
  1. MYOVIEW [Concomitant]
     Active Substance: TECHNETIUM TC-99M TETROFOSMIN
     Indication: RADIOISOTOPE SCAN
     Dosage: UNK
     Dates: start: 20091112, end: 20091112
  2. ULTRA-TECHNEKOW DTE [Suspect]
     Active Substance: TECHNETIUM TC-99M SODIUM PERTECHNETATE
     Indication: RADIOISOTOPE SCAN
     Dosage: 9.59 MCI, SINGLE??NUMBER OF SEPARATE DOSAGES: 1
     Route: 042
     Dates: start: 20091112, end: 20091112

REACTIONS (2)
  - Rash [Recovered/Resolved]
  - Urticaria [Unknown]

NARRATIVE: CASE EVENT DATE: 20091112
